FAERS Safety Report 6474204-0 (Version None)
Quarter: 2009Q4

REPORT INFORMATION
  Report Type: 
  Country: None (occurrence: None)
  Receive Date: 20091204
  Receipt Date: 20091125
  Transmission Date: 20100525
  Serious: Yes (Other)
  Sender: FDA-Public Use
  Company Number: BR-PFIZER INC-2009295553

PATIENT
  Age: 63 Year
  Sex: Male
  Weight: 72.018 kg

DRUGS (4)
  1. FRONTAL [Suspect]
     Indication: ANXIETY
     Dosage: 1/2 TABLET (0.25MG) AM, 1 TABLET (0.5MG) PM
     Route: 048
     Dates: start: 20010101
  2. FRONTAL [Suspect]
     Indication: STRESS
  3. AMITRIPTYLINE [Concomitant]
     Dosage: UNK
  4. DIOVAN HCT [Concomitant]
     Dosage: UNK

REACTIONS (5)
  - ABDOMINAL DISTENSION [None]
  - CHEST PAIN [None]
  - ERUCTATION [None]
  - FLATULENCE [None]
  - OESOPHAGEAL PAIN [None]
